FAERS Safety Report 21475480 (Version 1)
Quarter: 2022Q4

REPORT INFORMATION
  Report Type: Spontaneous
  Country: CN (occurrence: CN)
  Receive Date: 20221019
  Receipt Date: 20221019
  Transmission Date: 20230113
  Serious: Yes (Other)
  Sender: FDA-Public Use
  Company Number: None

PATIENT
  Age: 51 Year
  Sex: Female
  Weight: 51.5 kg

DRUGS (2)
  1. CYCLOPHOSPHAMIDE [Suspect]
     Active Substance: CYCLOPHOSPHAMIDE
     Indication: Breast cancer female
     Dosage: DOSAGE FORM- INJECTION, START TIME- AT 10:55 HOURS, 0.85 G, QD (DILUTED WITH 0.9% SODIUM CHLORIDE 50
     Route: 041
     Dates: start: 20220909, end: 20220909
  2. SODIUM CHLORIDE [Suspect]
     Active Substance: SODIUM CHLORIDE
     Indication: Medication dilution
     Dosage: DOSAGE FORM- INJECTION, START TIME- AT 10:55 HOURS, 500 ML, QD (DILUTED WITH CYCLOPHOSPHAMIDE 0.85 G
     Route: 041
     Dates: start: 20220909, end: 20220909

REACTIONS (2)
  - White blood cell count decreased [Recovered/Resolved]
  - Dizziness [Unknown]

NARRATIVE: CASE EVENT DATE: 20220928
